FAERS Safety Report 21791694 (Version 1)
Quarter: 2022Q4

REPORT INFORMATION
  Report Type: Spontaneous
  Country: US (occurrence: US)
  Receive Date: 20221229
  Receipt Date: 20221229
  Transmission Date: 20230113
  Serious: Yes (Death)
  Sender: FDA-Public Use
  Company Number: US-CELLTRION INC.-2022US021656

PATIENT

DRUGS (1)
  1. TRUXIMA [Suspect]
     Active Substance: RITUXIMAB-ABBS
     Indication: Chronic lymphocytic leukaemia
     Dosage: UNK
     Dates: start: 20200820

REACTIONS (1)
  - Death [Fatal]

NARRATIVE: CASE EVENT DATE: 20221217
